FAERS Safety Report 5953999-6 (Version None)
Quarter: 2008Q4

REPORT INFORMATION
  Report Type: 
  Country: None (occurrence: None)
  Receive Date: 20081114
  Receipt Date: 20081103
  Transmission Date: 20090506
  Serious: Yes (Other)
  Sender: FDA-Public Use
  Company Number: BR-PFIZER INC-2008095206

PATIENT
  Sex: Male

DRUGS (2)
  1. CHAMPIX [Suspect]
     Indication: TOBACCO USER
     Route: 048
     Dates: start: 20081023
  2. PROPAFENONE HCL [Concomitant]
     Route: 065

REACTIONS (8)
  - ABNORMAL DREAMS [None]
  - DIARRHOEA [None]
  - HUNGER [None]
  - ILL-DEFINED DISORDER [None]
  - NAUSEA [None]
  - THIRST [None]
  - VOMITING [None]
  - WEIGHT DECREASED [None]
